FAERS Safety Report 4706233-9 (Version None)
Quarter: 2005Q2

REPORT INFORMATION
  Report Type: 
  Country: None (occurrence: None)
  Receive Date: 20050113
  Receipt Date: 20050113
  Transmission Date: 20051028
  Serious: No
  Sender: FDA-Public Use
  Company Number: None

PATIENT
  Sex: Female
  Weight: 79.8331 kg

DRUGS (2)
  1. HYTRIN [Suspect]
     Dosage: 1 TABLET DAILY
  2. MAXZIDE [Suspect]
     Dosage: 2 CYCLES DAILY

REACTIONS (2)
  - DRUG INTOLERANCE [None]
  - THERAPEUTIC RESPONSE UNEXPECTED WITH DRUG SUBSTITUTION [None]
